FAERS Safety Report 7914041-0 (Version None)
Quarter: 2011Q4

REPORT INFORMATION
  Report Type: 
  Country: None (occurrence: None)
  Receive Date: 20111115
  Receipt Date: 20111104
  Transmission Date: 20120403
  Serious: Yes (Hospitalization)
  Sender: FDA-Public Use
  Company Number: US-BAYER-2011-052332

PATIENT
  Age: 37 Year
  Sex: Female
  Weight: 68.027 kg

DRUGS (7)
  1. VITAMIN B COMPLEX CAP [Concomitant]
     Dosage: UNK UNK, QD
     Dates: end: 20090709
  2. IBUPROFEN [Concomitant]
  3. L-LYSINE [Concomitant]
     Dosage: UNK UNK, QD
     Dates: end: 20090709
  4. YAZ [Suspect]
     Indication: ORAL CONTRACEPTION
     Dosage: UNK
     Dates: start: 20081001, end: 20090709
  5. METHYLPREDNISOLONE [Concomitant]
     Dosage: 4 MG, UNK
  6. VERAPAMIL EXTENDED-RELEASE [Concomitant]
     Dosage: 240 MG, UNK
  7. RANITIDINE [Concomitant]
     Dosage: 150 MG, UNK

REACTIONS (5)
  - PULMONARY EMBOLISM [None]
  - FATIGUE [None]
  - EMOTIONAL DISTRESS [None]
  - PAIN [None]
  - DEEP VEIN THROMBOSIS [None]
